FAERS Safety Report 21760141 (Version 5)
Quarter: 2025Q3

REPORT INFORMATION
  Report Type: Spontaneous
  Country: CA (occurrence: CA)
  Receive Date: 20221221
  Receipt Date: 20250909
  Transmission Date: 20251020
  Serious: Yes (Other)
  Sender: AUROBINDO
  Company Number: CA-AUROBINDO-AUR-APL-2022-053721

PATIENT
  Sex: Male

DRUGS (33)
  1. DULOXETINE [Suspect]
     Active Substance: DULOXETINE
     Indication: Migraine
     Route: 065
  2. DULOXETINE [Suspect]
     Active Substance: DULOXETINE
     Route: 065
  3. GABAPENTIN [Suspect]
     Active Substance: GABAPENTIN
     Indication: Product used for unknown indication
     Route: 065
  4. ONDANSETRON [Suspect]
     Active Substance: ONDANSETRON
     Indication: Migraine
     Route: 065
  5. TOPIRAMATE [Suspect]
     Active Substance: TOPIRAMATE
     Indication: Migraine
     Route: 065
  6. VENLAFAXINE [Suspect]
     Active Substance: VENLAFAXINE HYDROCHLORIDE
     Indication: Migraine
     Route: 065
  7. TRAMADOL HYDROCHLORIDE [Suspect]
     Active Substance: TRAMADOL HYDROCHLORIDE
     Indication: Migraine
     Route: 065
  8. ACETAMINOPHEN\TRAMADOL [Suspect]
     Active Substance: ACETAMINOPHEN\TRAMADOL
     Indication: Product used for unknown indication
     Route: 065
  9. ALMOTRIPTAN MALATE [Suspect]
     Active Substance: ALMOTRIPTAN MALATE
     Indication: Product used for unknown indication
     Route: 065
  10. BOTOX [Suspect]
     Active Substance: ONABOTULINUMTOXINA
     Indication: Product used for unknown indication
     Route: 030
  11. CELEBREX [Suspect]
     Active Substance: CELECOXIB
     Indication: Product used for unknown indication
     Route: 065
  12. CODEINE [Suspect]
     Active Substance: CODEINE
     Indication: Migraine
     Route: 065
  13. DEMEROL [Suspect]
     Active Substance: MEPERIDINE HYDROCHLORIDE
     Indication: Product used for unknown indication
     Route: 065
  14. DICLOFENAC POTASSIUM [Suspect]
     Active Substance: DICLOFENAC POTASSIUM
     Indication: Migraine
     Route: 065
  15. DIHYDROERGOTAMINE MESYLATE [Suspect]
     Active Substance: DIHYDROERGOTAMINE MESYLATE
     Indication: Migraine
     Route: 065
  16. ESOMEPRAZOLE MAGNESIUM\NAPROXEN [Suspect]
     Active Substance: ESOMEPRAZOLE MAGNESIUM\NAPROXEN
     Indication: Product used for unknown indication
     Route: 048
  17. HYDROMORPHONE HYDROCHLORIDE [Suspect]
     Active Substance: HYDROMORPHONE HYDROCHLORIDE
     Indication: Migraine
     Route: 065
  18. IBUPROFEN [Suspect]
     Active Substance: IBUPROFEN
     Indication: Product used for unknown indication
     Route: 065
  19. KETAMINE HYDROCHLORIDE [Suspect]
     Active Substance: KETAMINE HYDROCHLORIDE
     Indication: Migraine
     Route: 065
  20. MAXALT [Suspect]
     Active Substance: RIZATRIPTAN BENZOATE
     Indication: Product used for unknown indication
     Route: 065
  21. MORPHINE [Suspect]
     Active Substance: MORPHINE
     Indication: Migraine
     Route: 065
  22. NORTRIPTYLINE [Suspect]
     Active Substance: NORTRIPTYLINE
     Indication: Product used for unknown indication
     Route: 065
  23. PROPRANOLOL [Suspect]
     Active Substance: PROPRANOLOL HYDROCHLORIDE
     Indication: Migraine
     Route: 065
  24. TENORETIC [Suspect]
     Active Substance: ATENOLOL\CHLORTHALIDONE
     Indication: Product used for unknown indication
     Route: 048
  25. TORADOL [Suspect]
     Active Substance: KETOROLAC TROMETHAMINE
     Indication: Migraine
     Route: 065
  26. TYLENOL [Suspect]
     Active Substance: ACETAMINOPHEN
     Indication: Product used for unknown indication
     Route: 065
  27. AMITRIPTYLINE [Suspect]
     Active Substance: AMITRIPTYLINE
     Indication: Product used for unknown indication
     Route: 065
  28. TOPAMAX [Suspect]
     Active Substance: TOPIRAMATE
     Indication: Product used for unknown indication
     Route: 065
  29. ACETAMINOPHEN [Suspect]
     Active Substance: ACETAMINOPHEN
     Indication: Product used for unknown indication
     Route: 065
  30. TRIAMCINOLONE [Suspect]
     Active Substance: TRIAMCINOLONE
     Indication: Migraine
     Route: 065
  31. ESOMEPRAZOLE MAGNESIUM [Suspect]
     Active Substance: ESOMEPRAZOLE MAGNESIUM
     Indication: Product used for unknown indication
     Route: 048
  32. ENDOCET [Suspect]
     Active Substance: ACETAMINOPHEN\OXYCODONE HYDROCHLORIDE
     Indication: Migraine
     Route: 065
  33. DICLOFENAC SODIUM [Suspect]
     Active Substance: DICLOFENAC SODIUM
     Indication: Migraine
     Route: 065

REACTIONS (8)
  - Sedation [Unknown]
  - Hyperhidrosis [Unknown]
  - Nausea [Unknown]
  - Nephrolithiasis [Unknown]
  - Nightmare [Unknown]
  - Off label use [Unknown]
  - Drug ineffective [Unknown]
  - Product use in unapproved indication [Unknown]
